FAERS Safety Report 13665118 (Version 1)
Quarter: 2017Q2

REPORT INFORMATION
  Report Type: Spontaneous
  Country: US (occurrence: US)
  Receive Date: 20170619
  Receipt Date: 20170619
  Transmission Date: 20170830
  Serious: Yes (Life-Threatening)
  Sender: FDA-Public Use
  Company Number: US-FRESENIUS KABI-FK201705185

PATIENT
  Age: 8 Year
  Sex: Female

DRUGS (4)
  1. SEVOFLURANE. [Concomitant]
     Active Substance: SEVOFLURANE
     Indication: INDUCTION OF ANAESTHESIA
     Route: 050
  2. BUPIVACAINE W/EPINEPHRINE (MANUFACTURER UNKNOWN) [Suspect]
     Active Substance: BUPIVACAINE HYDROCHLORIDE\EPINEPHRINE
     Indication: ANAESTHESIA
     Route: 050
  3. FENTANYL. [Suspect]
     Active Substance: FENTANYL
     Route: 065
  4. DESFLURANE. [Concomitant]
     Active Substance: DESFLURANE
     Indication: INDUCTION OF ANAESTHESIA
     Route: 050

REACTIONS (2)
  - Drug administered to patient of inappropriate age [Recovered/Resolved]
  - Cardiac arrest [Recovered/Resolved]
